FAERS Safety Report 13436786 (Version 2)
Quarter: 2017Q2

REPORT INFORMATION
  Report Type: Report from Study
  Country: US (occurrence: US)
  Receive Date: 20170413
  Receipt Date: 20170518
  Transmission Date: 20170830
  Serious: Yes (Hospitalization)
  Sender: FDA-Public Use
  Company Number: US-JNJFOC-20161226660

PATIENT
  Age: 84 Year
  Sex: Male

DRUGS (1)
  1. IMBRUVICA [Suspect]
     Active Substance: IBRUTINIB
     Indication: CHRONIC LYMPHOCYTIC LEUKAEMIA
     Route: 048
     Dates: start: 20161216

REACTIONS (11)
  - Fall [Not Recovered/Not Resolved]
  - Hunger [Not Recovered/Not Resolved]
  - White blood cell count decreased [Not Recovered/Not Resolved]
  - Cerebral haemorrhage [Not Recovered/Not Resolved]
  - Hyperphagia [Not Recovered/Not Resolved]
  - Weight increased [Not Recovered/Not Resolved]
  - Head injury [Not Recovered/Not Resolved]
  - Memory impairment [Unknown]
  - Arthralgia [Unknown]
  - Somnolence [Not Recovered/Not Resolved]
  - Myalgia [Unknown]

NARRATIVE: CASE EVENT DATE: 20170402
